FAERS Safety Report 16628042 (Version 1)
Quarter: 2019Q3

REPORT INFORMATION
  Report Type: Spontaneous
  Country: US (occurrence: US)
  Receive Date: 20190612
  Receipt Date: 20190612
  Transmission Date: 20191004
  Serious: No
  Sender: FDA-Public Use
  Company Number: None

PATIENT

DRUGS (3)
  1. DEXMEDETOMIDINE DEXMEDETOMIDINE HYDROCHLORIDE [Suspect]
     Active Substance: DEXMEDETOMIDINE HYDROCHLORIDE
     Dosage: ?          OTHER STRENGTH:400 UG PER 100 ML;?
  2. CEFAZOLIN SODIUM CEFAZOLIN [Suspect]
     Active Substance: CEFAZOLIN SODIUM
     Dosage: ?          OTHER STRENGTH:2/100 G/ML;?
     Route: 042
  3. CLINDAMYCIN HCL CLINDAMYCIN [Suspect]
     Active Substance: CLINDAMYCIN HYDROCHLORIDE
     Route: 042

REACTIONS (2)
  - Product appearance confusion [None]
  - Product label confusion [None]
